FAERS Safety Report 4730742-X (Version None)
Quarter: 2005Q3

REPORT INFORMATION
  Report Type: 
  Country: None (occurrence: None)
  Receive Date: 20050725
  Receipt Date: 20050223
  Transmission Date: 20060218
  Serious: No
  Sender: FDA-Public Use
  Company Number: USA050291557

PATIENT
  Age: 17 Year
  Sex: Male

DRUGS (5)
  1. STRATTERA [Suspect]
     Indication: ATTENTION DEFICIT/HYPERACTIVITY DISORDER
     Dosage: 50 MG DAY
  2. VITAMINS [Concomitant]
  3. PROTEIN DRINKS [Concomitant]
  4. CLARITIN [Concomitant]
  5. TYLENOL COLD [Concomitant]

REACTIONS (1)
  - DRUG SCREEN POSITIVE [None]
